FAERS Safety Report 17920401 (Version 1)
Quarter: 2020Q2

REPORT INFORMATION
  Report Type: Spontaneous
  Country: FR (occurrence: FR)
  Receive Date: 20200620
  Receipt Date: 20200620
  Transmission Date: 20200714
  Serious: Yes (Life-Threatening)
  Sender: FDA-Public Use
  Company Number: NVSC2020FR172161

PATIENT
  Age: 76 Year
  Sex: Male
  Weight: 75 kg

DRUGS (4)
  1. PROGRAF [Suspect]
     Active Substance: TACROLIMUS
     Indication: PROPHYLAXIS AGAINST TRANSPLANT REJECTION
     Dosage: 4.5 MG, QD
     Route: 048
     Dates: end: 20200322
  2. APROVEL [Suspect]
     Active Substance: IRBESARTAN
     Indication: HYPERTENSION
     Dosage: 75 MG, QD
     Route: 048
     Dates: end: 20200322
  3. SOLUPRED (PREDNISOLONE METASULFOBENZOATE SODIUM) [Suspect]
     Active Substance: PREDNISOLONE SODIUM METAZOATE
     Indication: PROPHYLAXIS AGAINST TRANSPLANT REJECTION
     Dosage: UNK
     Route: 048
  4. MYFORTIC [Suspect]
     Active Substance: MYCOPHENOLATE SODIUM
     Indication: PROPHYLAXIS AGAINST TRANSPLANT REJECTION
     Dosage: 720 MG, QD
     Route: 048
     Dates: end: 20200322

REACTIONS (7)
  - Acute respiratory distress syndrome [Recovered/Resolved]
  - Coronavirus test positive [Not Recovered/Not Resolved]
  - Pyrexia [Recovered/Resolved]
  - Coronavirus infection [Recovering/Resolving]
  - Acute kidney injury [Recovering/Resolving]
  - Diarrhoea [Recovered/Resolved]
  - Condition aggravated [Recovered/Resolved]

NARRATIVE: CASE EVENT DATE: 20200312
